FAERS Safety Report 15306795 (Version 2)
Quarter: 2018Q4

REPORT INFORMATION
  Report Type: Report from Study
  Country: DE (occurrence: DE)
  Receive Date: 20180822
  Receipt Date: 20181004
  Transmission Date: 20190204
  Serious: Yes (Hospitalization)
  Sender: FDA-Public Use
  Company Number: PHHY2018DE075928

PATIENT
  Sex: Female

DRUGS (4)
  1. AMANTADINE. [Concomitant]
     Active Substance: AMANTADINE HYDROCHLORIDE
     Indication: FATIGUE
     Dosage: 100 MG, BID
     Route: 065
     Dates: start: 20140515
  2. NEOGAMA [Concomitant]
     Indication: VERTIGO
     Dosage: 50 MG, QD
     Route: 065
     Dates: start: 20140212
  3. GILENYA [Suspect]
     Active Substance: FINGOLIMOD HYDROCHLORIDE
     Indication: MULTIPLE SCLEROSIS
     Dosage: 0.5 MG, QD
     Route: 048
     Dates: start: 20120404
  4. OXCARBAZEPINE. [Concomitant]
     Active Substance: OXCARBAZEPINE
     Indication: MUSCLE SPASMS
     Dosage: 0.5 DF, BID
     Route: 065
     Dates: start: 20130511

REACTIONS (1)
  - Ameloblastoma [Recovered/Resolved]

NARRATIVE: CASE EVENT DATE: 20161129
